APPROVED DRUG PRODUCT: ORTHO-NOVUM 7/7/7-28
Active Ingredient: ETHINYL ESTRADIOL; NORETHINDRONE
Strength: 0.035MG,0.035MG,0.035MG;0.5MG,0.75MG,1MG **Federal Register determination that product was not discontinued or withdrawn for safety or effectiveness reasons**
Dosage Form/Route: TABLET;ORAL-28
Application: N018985 | Product #002
Applicant: JANSSEN PHARMACEUTICALS INC
Approved: Apr 4, 1984 | RLD: Yes | RS: No | Type: DISCN